FAERS Safety Report 10041054 (Version 1)
Quarter: 2014Q1

REPORT INFORMATION
  Report Type: Spontaneous
  Country: US (occurrence: None)
  Receive Date: 20140326
  Receipt Date: 20140326
  Transmission Date: 20141002
  Serious: Yes (Other)
  Sender: FDA-Public Use
  Company Number: None

PATIENT
  Age: 43 Year
  Sex: Female
  Weight: 93.9 kg

DRUGS (3)
  1. LAMICTAL [Suspect]
     Indication: BIPOLAR DISORDER
     Route: 048
     Dates: start: 20140130, end: 20140321
  2. SERTRALINE [Concomitant]
  3. ZOLPIDEM [Concomitant]

REACTIONS (4)
  - Product substitution issue [None]
  - Depression [None]
  - Intentional self-injury [None]
  - Abnormal behaviour [None]
